FAERS Safety Report 5073168-4 (Version None)
Quarter: 2006Q3

REPORT INFORMATION
  Report Type: 
  Country: None (occurrence: None)
  Receive Date: 20060803
  Receipt Date: 20060724
  Transmission Date: 20061208
  Serious: Yes (Disabling, Other)
  Sender: FDA-Public Use
  Company Number: 2006091217

PATIENT
  Age: 56 Year
  Sex: Male
  Weight: 102 kg

DRUGS (3)
  1. ATORVASTATIN CALCIUM [Suspect]
     Indication: HYPERLIPIDAEMIA
     Dosage: (60 MG), ORAL
     Route: 048
     Dates: start: 20060205, end: 20060522
  2. ATENOLOL [Concomitant]
  3. ISOSORBIDE (ISOSORBIDE) [Concomitant]

REACTIONS (2)
  - BRONCHOSPASM [None]
  - DYSPNOEA [None]
